FAERS Safety Report 7948245-8 (Version None)
Quarter: 2011Q4

REPORT INFORMATION
  Report Type: 
  Country: None (occurrence: None)
  Receive Date: 20111125
  Receipt Date: 20111118
  Transmission Date: 20120403
  Serious: Yes (Hospitalization, Other)
  Sender: FDA-Public Use
  Company Number: JPI-P-007866

PATIENT
  Age: 54 Year
  Sex: Female
  Weight: 84.8226 kg

DRUGS (22)
  1. AMLODIPINE [Concomitant]
  2. BUPROPION HYDROCHLORIDE SUSTAINED RELEASE [Concomitant]
  3. ALBUTEROL [Concomitant]
  4. MUSCLE RELAXANTS [Suspect]
     Indication: PRODUCT USED FOR UNKNOWN INDICATION
  5. CELECOXIB [Concomitant]
  6. CITALOPRAM HYDROBROMIDE [Concomitant]
  7. BENAZEPRIL HYDROCHLORIDE [Concomitant]
  8. FLUOXETINE [Concomitant]
  9. CLONAZEPAM [Concomitant]
  10. THYROID 50 [Concomitant]
  11. HYDROCODONE AND ASPIRIN [Concomitant]
  12. DEPO-ESTRADIOL [Concomitant]
  13. MELOXICAM [Concomitant]
  14. XYREM [Suspect]
     Indication: CATAPLEXY
     Dosage: 6 GM (3 GM, 2 IN 1 D), ORAL, 9 GM (4.5 GM, 2 IN 1 D), ORAL, 9 GM (4.5 GM, 2 IN 1 D), ORAL
     Route: 048
     Dates: start: 20090708
  15. XYREM [Suspect]
     Indication: CATAPLEXY
     Dosage: 6 GM (3 GM, 2 IN 1 D), ORAL, 9 GM (4.5 GM, 2 IN 1 D), ORAL, 9 GM (4.5 GM, 2 IN 1 D), ORAL
     Route: 048
     Dates: start: 20090601, end: 20090629
  16. XYREM [Suspect]
     Indication: CATAPLEXY
     Dosage: 6 GM (3 GM, 2 IN 1 D), ORAL, 9 GM (4.5 GM, 2 IN 1 D), ORAL, 9 GM (4.5 GM, 2 IN 1 D), ORAL
     Route: 048
     Dates: start: 20080125, end: 20090531
  17. CORTISONE ACETATE [Suspect]
     Indication: BACK PAIN
     Dosage: 0.0714 DOSAGE FORMS (1 DOSAGE FORMS, 1 IN 2 WK), INJECTION
     Dates: start: 20110420, end: 20110717
  18. CETIRIZINE HCL [Concomitant]
  19. CARBIDOPA AND LEVODOPA [Concomitant]
  20. MORPHINE [Concomitant]
  21. LEVOTHYROXINE SODIUM [Concomitant]
  22. HYDROCODONE BITARTRATE AND ACETAMINOPHEN [Concomitant]

REACTIONS (26)
  - POOR QUALITY SLEEP [None]
  - ABNORMAL DREAMS [None]
  - CUSHING'S SYNDROME [None]
  - IRON DEFICIENCY [None]
  - INTERVERTEBRAL DISC DISORDER [None]
  - NIGHT SWEATS [None]
  - BLADDER SPASM [None]
  - ADRENAL INSUFFICIENCY [None]
  - SPINAL CORD DISORDER [None]
  - DEVICE ISSUE [None]
  - SLEEP TERROR [None]
  - WEIGHT INCREASED [None]
  - TOOTH ABSCESS [None]
  - INTERVERTEBRAL DISC PROTRUSION [None]
  - SOMNAMBULISM [None]
  - INCREASED APPETITE [None]
  - SLEEP PARALYSIS [None]
  - GLOSSITIS [None]
  - ACCIDENTAL OVERDOSE [None]
  - SLEEP TALKING [None]
  - PAIN IN EXTREMITY [None]
  - GLOSSODYNIA [None]
  - INCOHERENT [None]
  - SWOLLEN TONGUE [None]
  - SPEECH DISORDER [None]
  - SURGICAL FAILURE [None]
